FAERS Safety Report 23470052 (Version 1)
Quarter: 2024Q1

REPORT INFORMATION
  Report Type: Spontaneous
  Country: PT (occurrence: PT)
  Receive Date: 20240202
  Receipt Date: 20240202
  Transmission Date: 20240410
  Serious: Yes (Hospitalization, Other)
  Sender: FDA-Public Use
  Company Number: PT-JNJFOC-20240179501

PATIENT
  Age: 26 Year
  Sex: Female

DRUGS (2)
  1. REMICADE [Suspect]
     Active Substance: INFLIXIMAB
     Indication: Crohn^s disease
     Route: 041
     Dates: start: 202309
  2. STELARA [Concomitant]
     Active Substance: USTEKINUMAB

REACTIONS (5)
  - Disseminated tuberculosis [Unknown]
  - Leukopenia [Unknown]
  - Pyrexia [Unknown]
  - Decreased appetite [Unknown]
  - Anaemia [Unknown]
